FAERS Safety Report 9639955 (Version 1)
Quarter: 2013Q4

REPORT INFORMATION
  Report Type: Spontaneous
  Country: US (occurrence: None)
  Receive Date: 20131021
  Receipt Date: 20131021
  Transmission Date: 20140711
  Serious: Yes (Other)
  Sender: FDA-Public Use
  Company Number: None

PATIENT
  Age: 53 Year
  Sex: Female
  Weight: 70.31 kg

DRUGS (12)
  1. LEVOXYL [Suspect]
     Indication: THYROID CANCER
     Dosage: (150 MCG) 1 PILL ONCE
     Route: 048
     Dates: start: 20121228, end: 20130605
  2. LEVOXYL [Suspect]
     Dosage: (150 MCG) 1 PILL ONCE
     Route: 048
     Dates: start: 20121228, end: 20130605
  3. PANTOPRAZOLE 40 MG POWDER FOR SOLUTION FOR INJECTION [Concomitant]
  4. ATENOLOL 25 MG TABLET [Concomitant]
  5. CITALOPRAM 15 MG [Concomitant]
  6. B12 SHOT [Concomitant]
  7. ADVAIR [Concomitant]
  8. TIROSINT 137 MCG) [Concomitant]
  9. PANTANASE [Concomitant]
  10. PROMETHIUM 100 MG [Concomitant]
  11. ELASTIN [Concomitant]
  12. ALPRAZOLAM 25 MG [Concomitant]

REACTIONS (17)
  - Malaise [None]
  - Asthenia [None]
  - Fatigue [None]
  - Asthenia [None]
  - Fatigue [None]
  - Weight increased [None]
  - Abdominal distension [None]
  - Mood swings [None]
  - Depression [None]
  - Constipation [None]
  - Alopecia [None]
  - Dry skin [None]
  - Psoriasis [None]
  - Disturbance in attention [None]
  - Irritability [None]
  - Nausea [None]
  - Gastritis [None]
